FAERS Safety Report 21392366 (Version 3)
Quarter: 2022Q4

REPORT INFORMATION
  Report Type: Spontaneous
  Country: IT (occurrence: IT)
  Receive Date: 20220929
  Receipt Date: 20221021
  Transmission Date: 20230113
  Serious: Yes (Hospitalization, Other)
  Sender: FDA-Public Use
  Company Number: None

PATIENT
  Age: 60 Year
  Sex: Male
  Weight: 95 kg

DRUGS (2)
  1. PIPERACILLIN SODIUM\TAZOBACTAM SODIUM [Suspect]
     Active Substance: PIPERACILLIN SODIUM\TAZOBACTAM SODIUM
     Indication: Empyema
     Dosage: 4.5 G THREE TIMES A DAY
     Route: 065
     Dates: start: 202208, end: 202208
  2. VANCOMYCIN [Suspect]
     Active Substance: VANCOMYCIN
     Indication: Empyema
     Route: 065
     Dates: start: 202208, end: 202208

REACTIONS (2)
  - Tubulointerstitial nephritis [Recovered/Resolved with Sequelae]
  - Acute kidney injury [Recovered/Resolved]

NARRATIVE: CASE EVENT DATE: 20220801
